FAERS Safety Report 6638588-2 (Version None)
Quarter: 2010Q1

REPORT INFORMATION
  Report Type: 
  Country: None (occurrence: None)
  Receive Date: 20100317
  Receipt Date: 20100308
  Transmission Date: 20100710
  Serious: Yes (Hospitalization)
  Sender: FDA-Public Use
  Company Number: US-SANOFI-AVENTIS-2010SA013910

PATIENT
  Age: 79 Year
  Sex: Female

DRUGS (4)
  1. LANTUS [Suspect]
     Indication: TYPE 2 DIABETES MELLITUS
     Dosage: STARTED ON 10 UNITS, INCREASED TO 20 UNITS, THEN 24 UNITS (CURRENTLY 20-28 UNITS)
     Route: 058
     Dates: start: 20070101
  2. SOLOSTAR [Suspect]
     Indication: TYPE 2 DIABETES MELLITUS
     Dates: start: 20091201
  3. OPTICLICK [Suspect]
     Indication: TYPE 2 DIABETES MELLITUS
     Dates: start: 20070101, end: 20091201
  4. CORTICOSTEROIDS [Concomitant]
     Dates: start: 20091201

REACTIONS (6)
  - ARRHYTHMIA [None]
  - FALL [None]
  - HYPERGLYCAEMIA [None]
  - MOBILITY DECREASED [None]
  - PNEUMONIA [None]
  - URINARY TRACT INFECTION [None]
